FAERS Safety Report 11351586 (Version 1)
Quarter: 2015Q3

REPORT INFORMATION
  Report Type: Spontaneous
  Country: US (occurrence: None)
  Receive Date: 20150806
  Receipt Date: 20150806
  Transmission Date: 20151125
  Serious: No
  Sender: FDA-Public Use
  Company Number: None

PATIENT
  Age: 47 Year
  Sex: Female

DRUGS (6)
  1. INTERFERON BETA-1A (AVONEX) [Concomitant]
  2. METHYLPREDNISOLONE SOD SUCC (SOLU-MEDROL) [Concomitant]
  3. NORTRIPTYLINE (AVENTYL/PAMELOR) [Concomitant]
  4. OXYBUTYNIN (DITROPAN XL) [Concomitant]
  5. AMPYRA [Suspect]
     Active Substance: DALFAMPRIDINE
     Indication: MULTIPLE SCLEROSIS
     Route: 048
     Dates: start: 201307
  6. NAPROXEN (NAPROSYN) [Concomitant]

REACTIONS (1)
  - Urine analysis abnormal [None]

NARRATIVE: CASE EVENT DATE: 20150714
